FAERS Safety Report 7778035-0 (Version None)
Quarter: 2011Q3

REPORT INFORMATION
  Report Type: 
  Country: None (occurrence: None)
  Receive Date: 20110926
  Receipt Date: 20110920
  Transmission Date: 20111222
  Serious: Yes (Life-Threatening)
  Sender: FDA-Public Use
  Company Number: JP-BAYER-200913976BYL

PATIENT
  Age: 61 Year
  Sex: Male
  Weight: 72 kg

DRUGS (17)
  1. GLYBURIDE [Concomitant]
     Dosage: SINCE BEFORE ADMINISTRATION
     Route: 048
     Dates: end: 20091016
  2. LENDORMIN [Concomitant]
     Dosage: SINCE BEFORE ADMINISTRATION
     Route: 048
     Dates: end: 20090925
  3. URSO 250 [Concomitant]
     Dosage: SINCE BEFORE ADMINISTRATION
     Route: 048
     Dates: end: 20091016
  4. PROMAC [Concomitant]
     Dosage: 3 DF (DAILY DOSE), , ORAL
     Route: 048
     Dates: start: 20090101, end: 20091016
  5. DORIPENEM MONOHYDRATE [Concomitant]
     Indication: PYREXIA
     Dosage: SINCE BEFORE ADMINISTRATION
     Route: 042
     Dates: end: 20090928
  6. RABEPRAZOLE SODIUM [Concomitant]
     Dosage: DAILY DOSE 10 MG
     Route: 048
     Dates: end: 20071014
  7. DORIPENEM MONOHYDRATE [Concomitant]
     Indication: LIVER ABSCESS
     Dosage: 1.5 G (DAILY DOSE), , INTRAVENOUS
     Route: 042
     Dates: start: 20090929, end: 20091002
  8. ALDACTONE [Concomitant]
     Dosage: SINCE BEFORE ADMINISTRATION
     Route: 048
     Dates: end: 20091016
  9. CIPROFLAXACIN [Concomitant]
     Dosage: 600 MG (DAILY DOSE), , IV DRIP
     Route: 041
     Dates: start: 20091003, end: 20091009
  10. AMINOLEBAN EN [Concomitant]
     Dosage: SINCE BEFORE ADMINISTRATION
     Route: 048
     Dates: end: 20091016
  11. SHAKUYAKUKANZOUTOU [Concomitant]
     Dosage: SINCE BEFORE ADMINISTRATION
     Route: 048
     Dates: end: 20091016
  12. LACTULOSE [Concomitant]
     Dosage: SINCE BEFORE ADMINISTRATION
     Route: 048
     Dates: end: 20090925
  13. SORAFENIB (RAF KINASE INHIBITOR) [Suspect]
     Indication: HEPATIC NEOPLASM MALIGNANT
     Dosage: 400 MG, BID
     Dates: start: 20090915, end: 20090917
  14. SORAFENIB (RAF KINASE INHIBITOR) [Suspect]
     Dosage: 800 MG, UNK
     Route: 048
     Dates: start: 20090924, end: 20091016
  15. RABEPRAZOLE SODIUM [Concomitant]
     Dosage: SINCE BEFORE ADMINISTRATION
     Route: 048
     Dates: end: 20091016
  16. LASIX [Concomitant]
     Dosage: DAILY DOSE 40 MG
     Route: 048
     Dates: start: 20091006, end: 20091013
  17. ACETAMINOPHEN [Concomitant]
     Indication: PYREXIA
     Dosage: 200 MG (DAILY DOSE), , ORAL
     Route: 048
     Dates: start: 20090916, end: 20091016

REACTIONS (5)
  - LIVER ABSCESS [None]
  - OESOPHAGEAL VARICES HAEMORRHAGE [None]
  - INSOMNIA [None]
  - ASCITES [None]
  - PYREXIA [None]
